FAERS Safety Report 13007907 (Version 1)
Quarter: 2016Q4

REPORT INFORMATION
  Report Type: Spontaneous
  Country: DE (occurrence: DE)
  Receive Date: 20161208
  Receipt Date: 20161208
  Transmission Date: 20170207
  Serious: Yes (Congenital Anomaly, Other)
  Sender: FDA-Public Use
  Company Number: DE-HETERO LABS LTD-1060552

PATIENT
  Age: 1 Day
  Sex: Male

DRUGS (3)
  1. NOVOPULMON 200 NOVOLIZER [Suspect]
     Active Substance: BUDESONIDE
     Route: 064
     Dates: start: 20140927, end: 20150717
  2. BERODUAL N DOSIERAEROSOL [Concomitant]
     Route: 064
     Dates: start: 20140927, end: 20150717
  3. LEVETIRACETAM. [Suspect]
     Active Substance: LEVETIRACETAM
     Indication: EPILEPSY
     Route: 064
     Dates: start: 20140927, end: 20150717

REACTIONS (3)
  - Pancreatic cyst [Not Recovered/Not Resolved]
  - Foetal exposure during pregnancy [Unknown]
  - Congenital hydronephrosis [Not Recovered/Not Resolved]
